FAERS Safety Report 22182543 (Version 2)
Quarter: 2024Q4

REPORT INFORMATION
  Report Type: Spontaneous
  Country: PL (occurrence: PL)
  Receive Date: 20230406
  Receipt Date: 20241029
  Transmission Date: 20250115
  Serious: Yes (Other)
  Sender: MYLAN
  Company Number: PL-002147023-NVSC2023PL067744

PATIENT
  Age: 49 Year
  Sex: Female

DRUGS (6)
  1. SIMVASTATIN [Interacting]
     Active Substance: SIMVASTATIN
     Indication: Product used for unknown indication
     Dosage: UNK
     Route: 065
  2. SIMVASTATIN [Interacting]
     Active Substance: SIMVASTATIN
     Dosage: UNK
     Route: 065
     Dates: start: 202202
  3. ZOLEDRONIC ACID [Interacting]
     Active Substance: ZOLEDRONIC ACID
     Indication: Product used for unknown indication
     Dosage: UNK
     Route: 065
     Dates: start: 20211013
  4. RIBOCICLIB [Interacting]
     Active Substance: RIBOCICLIB
     Indication: Breast cancer metastatic
     Dosage: 400 MG, QD (PER DAILY)
     Route: 065
  5. RIBOCICLIB [Interacting]
     Active Substance: RIBOCICLIB
     Dosage: UNK
     Route: 065
     Dates: start: 20211004
  6. RIBOCICLIB [Interacting]
     Active Substance: RIBOCICLIB
     Dosage: 200 MG, QD (PER DAILY)
     Route: 065

REACTIONS (4)
  - Neutropenia [Unknown]
  - Drug interaction [Unknown]
  - Alanine aminotransferase increased [Unknown]
  - Aspartate aminotransferase increased [Unknown]
